FAERS Safety Report 23372584 (Version 1)
Quarter: 2024Q1

REPORT INFORMATION
  Report Type: Spontaneous
  Country: CA (occurrence: CA)
  Receive Date: 20240105
  Receipt Date: 20240105
  Transmission Date: 20240410
  Serious: Yes (Life-Threatening)
  Sender: FDA-Public Use
  Company Number: CA-FreseniusKabi-FK202400125

PATIENT
  Age: 43 Year
  Sex: Female
  Weight: 49.44 kg

DRUGS (3)
  1. FENTANYL CITRATE [Suspect]
     Active Substance: FENTANYL CITRATE
     Indication: Product used for unknown indication
     Dosage: FORM: LIQUID EPIDURAL?ROA: INTRAVENOUS
  2. LIDOCAINE HYDROCHLORIDE [Suspect]
     Active Substance: LIDOCAINE HYDROCHLORIDE
     Indication: Product used for unknown indication
     Dosage: FORM: LIQUID TOPICAL?ROA: ENDOTRACHEAL
  3. MIDAZOLAM [Concomitant]
     Active Substance: MIDAZOLAM
     Indication: Product used for unknown indication

REACTIONS (5)
  - Circumoral oedema [Recovered/Resolved]
  - Endotracheal intubation [Recovered/Resolved]
  - Oxygen saturation decreased [Recovered/Resolved]
  - Stridor [Recovered/Resolved]
  - Urticaria [Recovered/Resolved]
